FAERS Safety Report 24574793 (Version 4)
Quarter: 2024Q4

REPORT INFORMATION
  Report Type: Report from Study
  Country: BR (occurrence: BR)
  Receive Date: 20241104
  Receipt Date: 20241220
  Transmission Date: 20250114
  Serious: Yes (Other)
  Sender: CELLTRION
  Company Number: BR-CELLTRION INC.- 2022BR012530

PATIENT

DRUGS (3)
  1. INFLIXIMAB-DYYB [Suspect]
     Active Substance: INFLIXIMAB-DYYB
     Indication: Crohn^s disease
     Dosage: 5 AMPOULES OF 100MG EACH (500MG TOTAL) EVERY 2 MONTHS.
     Route: 042
     Dates: start: 20220725
  2. INFLIXIMAB-DYYB [Suspect]
     Active Substance: INFLIXIMAB-DYYB
     Dosage: 5 AMPOULES OF 100 MG EACH (500MG TOTAL) EVERY 2 MONTHS
     Route: 042
     Dates: start: 20241031
  3. AZATHIOPRINE [Suspect]
     Active Substance: AZATHIOPRINE
     Indication: Crohn^s disease

REACTIONS (5)
  - Nephrolithiasis [Recovered/Resolved]
  - Pyrexia [Recovered/Resolved]
  - Intentional dose omission [Unknown]
  - Treatment delayed [Unknown]
  - Overdose [Unknown]

NARRATIVE: CASE EVENT DATE: 20220707
